FAERS Safety Report 16626304 (Version 2)
Quarter: 2019Q4

REPORT INFORMATION
  Report Type: Spontaneous
  Country: US (occurrence: US)
  Receive Date: 20190724
  Receipt Date: 20191022
  Transmission Date: 20200122
  Serious: No
  Sender: FDA-Public Use
  Company Number: US-INCYTE CORPORATION-2019IN007281

PATIENT

DRUGS (4)
  1. JAKAFI [Suspect]
     Active Substance: RUXOLITINIB
     Dosage: 10 MG QAM; 15 MG QPM
     Route: 048
     Dates: start: 20180207
  2. JAKAFI [Suspect]
     Active Substance: RUXOLITINIB
     Dosage: 10 MG IN AM 15 MG IN HS
     Route: 048
     Dates: start: 20180215
  3. JAKAFI [Suspect]
     Active Substance: RUXOLITINIB
     Dosage: 10 MG QAM; 15 MG QPM
     Route: 048
     Dates: start: 20180207
  4. JAKAFI [Suspect]
     Active Substance: RUXOLITINIB
     Dosage: 10 MG IN AM 15 MG IN HS
     Route: 048
     Dates: start: 20180215

REACTIONS (4)
  - Muscular weakness [Recovering/Resolving]
  - Weight increased [Unknown]
  - Decreased activity [Unknown]
  - Fatigue [Unknown]
